FAERS Safety Report 17452906 (Version 5)
Quarter: 2020Q2

REPORT INFORMATION
  Report Type: Spontaneous
  Country: US (occurrence: US)
  Receive Date: 20200224
  Receipt Date: 20200525
  Transmission Date: 20200713
  Serious: Yes (Life-Threatening, Hospitalization)
  Sender: FDA-Public Use
  Company Number: NVSC2020US050977

PATIENT
  Sex: Female

DRUGS (4)
  1. LENVIMA [Suspect]
     Active Substance: LENVATINIB
     Dosage: 14 MG, QD
     Route: 048
     Dates: start: 20200408, end: 20200418
  2. AFINITOR [Suspect]
     Active Substance: EVEROLIMUS
     Indication: RENAL CANCER
     Dosage: UNK
     Route: 065
     Dates: start: 20200320, end: 20200418
  3. LENVIMA [Suspect]
     Active Substance: LENVATINIB
     Indication: RENAL CANCER
     Dosage: 18 MG, QD
     Route: 048
     Dates: start: 202002
  4. AFINITOR [Suspect]
     Active Substance: EVEROLIMUS
     Dosage: UNK
     Route: 065
     Dates: start: 202004

REACTIONS (17)
  - Renal artery occlusion [Not Recovered/Not Resolved]
  - Dehydration [Unknown]
  - Hypertension [Recovered/Resolved]
  - Pericardial effusion [Not Recovered/Not Resolved]
  - Respiratory distress [Not Recovered/Not Resolved]
  - Decreased appetite [Unknown]
  - Confusional state [Not Recovered/Not Resolved]
  - Single functional kidney [Unknown]
  - Renal failure [Not Recovered/Not Resolved]
  - Nausea [Unknown]
  - Feeling abnormal [Not Recovered/Not Resolved]
  - Pleural effusion [Not Recovered/Not Resolved]
  - Hepatic enzyme increased [Unknown]
  - Asthenia [Not Recovered/Not Resolved]
  - Blood creatine increased [Unknown]
  - International normalised ratio increased [Unknown]
  - Diarrhoea [Recovered/Resolved]
